FAERS Safety Report 25612943 (Version 3)
Quarter: 2025Q3

REPORT INFORMATION
  Report Type: Spontaneous
  Country: EU (occurrence: EU)
  Receive Date: 20250728
  Receipt Date: 20250909
  Transmission Date: 20251020
  Serious: Yes (Hospitalization, Other)
  Sender: Atnahs Healthcare
  Company Number: EU-ANGELINI PHARMA PORTUGAL-2025-038361

PATIENT

DRUGS (5)
  1. NAPROSYN [Suspect]
     Active Substance: NAPROXEN
     Dosage: UNK, TWO TIMES A DAY
     Route: 048
  2. NAPROSYN [Suspect]
     Active Substance: NAPROXEN
     Route: 048
  3. DICLOFENAC [Suspect]
     Active Substance: DICLOFENAC
     Indication: Product used for unknown indication
     Route: 030
  4. BETAMETHASONE [Suspect]
     Active Substance: BETAMETHASONE
     Indication: Product used for unknown indication
     Route: 030
  5. RIVAROXABAN [Suspect]
     Active Substance: RIVAROXABAN
     Indication: Deep vein thrombosis
     Route: 048

REACTIONS (6)
  - Gastrointestinal haemorrhage [Unknown]
  - Iron deficiency anaemia [Unknown]
  - Haemorrhoidal haemorrhage [Unknown]
  - Overdose [Unknown]
  - Rectal haemorrhage [Unknown]
  - Iatrogenic injury [Unknown]
